FAERS Safety Report 14174282 (Version 1)
Quarter: 2017Q4

REPORT INFORMATION
  Report Type: Spontaneous
  Country: US (occurrence: US)
  Receive Date: 20171109
  Receipt Date: 20171109
  Transmission Date: 20180321
  Serious: Yes (Other)
  Sender: FDA-Public Use
  Company Number: US-PFIZER INC-2017478082

PATIENT
  Age: 55 Year
  Sex: Male

DRUGS (3)
  1. EPINEPHRINE. [Concomitant]
     Active Substance: EPINEPHRINE
     Dosage: UNK
  2. ADENOSINE DIPHOSPHATE [Concomitant]
     Active Substance: ADENOSINE
     Dosage: UNK
  3. PIPERACILLIN/TAZOBACTAM [Suspect]
     Active Substance: PIPERACILLIN SODIUM\TAZOBACTAM SODIUM
     Indication: PNEUMONIA ASPIRATION
     Dosage: UNK

REACTIONS (2)
  - Platelet dysfunction [Recovering/Resolving]
  - Cerebral haemorrhage [Recovering/Resolving]
